FAERS Safety Report 7345459-5 (Version None)
Quarter: 2011Q1

REPORT INFORMATION
  Report Type: 
  Country: None (occurrence: None)
  Receive Date: 20110310
  Receipt Date: 20110303
  Transmission Date: 20110831
  Serious: Yes (Other)
  Sender: FDA-Public Use
  Company Number: US-PFIZER INC-2010049883

PATIENT
  Age: 58 Year
  Sex: Male
  Weight: 78.5 kg

DRUGS (7)
  1. ASPIRIN [Concomitant]
  2. VIAGRA [Suspect]
     Indication: ERECTILE DYSFUNCTION
     Dosage: UNK
     Dates: start: 20090120
  3. BACLOFEN [Concomitant]
     Dosage: UNK
  4. NORVASC [Concomitant]
     Dosage: UNK
  5. HYZAAR [Concomitant]
     Dosage: UNK
  6. LITHIUM [Concomitant]
     Dosage: UNK
  7. ALLOPURINOL [Concomitant]
     Dosage: UNK

REACTIONS (5)
  - LENTICULAR OPACITIES [None]
  - VITREOUS FLOATERS [None]
  - PHOTOPSIA [None]
  - BLINDNESS [None]
  - RETINAL TEAR [None]
